FAERS Safety Report 8517814 (Version 3)
Quarter: 2012Q4

REPORT INFORMATION
  Report Type: 
  Country: US (occurrence: US)
  Receive Date: 20120417
  Receipt Date: 20120919
  Transmission Date: 20130627
  Serious: Yes (Hospitalization)
  Sender: FDA-Public Use
  Company Number: US-ASTRAZENECA-2011SE18039

PATIENT
  Age: 45 Year
  Sex: Female

DRUGS (1)
  1. NEXIUM [Suspect]
     Indication: DYSPEPSIA
     Route: 048

REACTIONS (7)
  - Dyspnoea [Unknown]
  - Hyperchlorhydria [Unknown]
  - Dyspepsia [Unknown]
  - Regurgitation [Unknown]
  - Sleep disorder due to a general medical condition [Unknown]
  - Ulcer [Unknown]
  - Drug dose omission [Unknown]
